FAERS Safety Report 19766457 (Version 5)
Quarter: 2023Q1

REPORT INFORMATION
  Report Type: Spontaneous
  Country: US (occurrence: US)
  Receive Date: 20210831
  Receipt Date: 20230210
  Transmission Date: 20230418
  Serious: Yes (Death, Hospitalization, Other)
  Sender: FDA-Public Use
  Company Number: US-ABBVIE-21K-163-4057510-00

PATIENT
  Sex: Male

DRUGS (3)
  1. LUPRON [Suspect]
     Active Substance: LEUPROLIDE ACETATE
     Indication: Product used for unknown indication
     Route: 065
     Dates: start: 2015
  2. XTANDI [Suspect]
     Active Substance: ENZALUTAMIDE
     Indication: Neoplasm malignant
     Route: 048
     Dates: start: 20190327
  3. XTANDI [Suspect]
     Active Substance: ENZALUTAMIDE
     Indication: Neoplasm malignant
     Route: 048

REACTIONS (14)
  - Prostate cancer metastatic [Fatal]
  - Crohn^s disease [Recovered/Resolved]
  - Enteritis infectious [Recovered/Resolved]
  - Intestinal obstruction [Recovered/Resolved]
  - Intestinal obstruction [Unknown]
  - Upper limb fracture [Unknown]
  - Hot flush [Unknown]
  - Hot flush [Unknown]
  - Hair growth abnormal [Unknown]
  - Hypoaesthesia [Unknown]
  - Arthropathy [Unknown]
  - Arthritis [Unknown]
  - Diplopia [Unknown]
  - Non-Hodgkin^s lymphoma [Fatal]

NARRATIVE: CASE EVENT DATE: 20190101
